FAERS Safety Report 9290081 (Version 1)
Quarter: 2013Q2

REPORT INFORMATION
  Report Type: Spontaneous
  Country: US (occurrence: None)
  Receive Date: 20130510
  Receipt Date: 20130510
  Transmission Date: 20140414
  Serious: Yes (Other)
  Sender: FDA-Public Use
  Company Number: 2013P1005358

PATIENT
  Age: 43 Year
  Sex: Female

DRUGS (2)
  1. LITHIUM [Suspect]
  2. VITAMIN D [Suspect]
     Dosage: 8000 IU;QD;

REACTIONS (6)
  - Mental status changes [None]
  - Hallucination, visual [None]
  - Antipsychotic drug level increased [None]
  - Hypocalciuria [None]
  - Blood calcium increased [None]
  - Vitamin D increased [None]
